FAERS Safety Report 7601760-9 (Version None)
Quarter: 2011Q3

REPORT INFORMATION
  Report Type: 
  Country: None (occurrence: None)
  Receive Date: 20110711
  Receipt Date: 20110627
  Transmission Date: 20111222
  Serious: Yes (Other)
  Sender: FDA-Public Use
  Company Number: DE-UCBSA-035034

PATIENT
  Sex: Female

DRUGS (6)
  1. CIMZIA [Suspect]
     Indication: RHEUMATOID ARTHRITIS
     Route: 058
     Dates: start: 20110114
  2. METOPROLOL TARTRATE [Concomitant]
     Indication: HYPERTENSION
     Dosage: UNKNOWN DOSE
  3. IBUPROFEN [Concomitant]
     Indication: ARTHRITIS
     Dosage: UNKNOWN DOSE
  4. KATADOLON [Concomitant]
     Indication: FIBROMYALGIA
     Dosage: UNKNOWN DOSE
  5. OMEPRAZOLE [Concomitant]
     Indication: GASTRIC DISORDER
     Dosage: UNKNOWN DOSE
  6. CANDESARTAN CILEXETIL [Concomitant]
     Indication: HYPERTENSION
     Dosage: UNKNOWN DOSE

REACTIONS (4)
  - PAPILLOMA VIRAL INFECTION [None]
  - DYSURIA [None]
  - FIBROMYALGIA [None]
  - SMEAR CERVIX ABNORMAL [None]
